FAERS Safety Report 23836005 (Version 2)
Quarter: 2024Q3

REPORT INFORMATION
  Report Type: Spontaneous
  Country: SE (occurrence: SE)
  Receive Date: 20240509
  Receipt Date: 20240812
  Transmission Date: 20241016
  Serious: Yes (Other)
  Sender: BRISTOL MYERS SQUIBB
  Company Number: SE-BRISTOL-MYERS SQUIBB COMPANY-2024-070370

PATIENT
  Age: 68 Year
  Sex: Female

DRUGS (1)
  1. NIVOLUMAB [Suspect]
     Active Substance: NIVOLUMAB
     Indication: Malignant melanoma
     Dosage: DOSE : UNAVAILABLE;     FREQ : UNAVAILABLE
     Dates: start: 2023, end: 202312

REACTIONS (2)
  - Cholangitis [Unknown]
  - Skin toxicity [Unknown]

NARRATIVE: CASE EVENT DATE: 20231201
